FAERS Safety Report 16624048 (Version 8)
Quarter: 2019Q3

REPORT INFORMATION
  Report Type: Report from Study
  Country: None (occurrence: IL)
  Receive Date: 20190724
  Receipt Date: 20190927
  Transmission Date: 20191004
  Serious: Yes (Hospitalization)
  Sender: FDA-Public Use
  Company Number: IL-ABBVIE-19K-082-2864188-00

PATIENT
  Age: 83 Year
  Sex: Male

DRUGS (9)
  1. DUODOPA [Suspect]
     Active Substance: CARBIDOPA\LEVODOPA
     Dosage: MD 1.5ML, CD DOSE 3.4ML/HOUR, CONTINUOUS NIGHT DOSE 2.1ML/HOUR, ED 0.8ML
     Route: 050
  2. AMANTADINE. [Suspect]
     Active Substance: AMANTADINE HYDROCHLORIDE
     Indication: PRODUCT USED FOR UNKNOWN INDICATION
     Route: 065
  3. DUODOPA [Suspect]
     Active Substance: CARBIDOPA\LEVODOPA
     Dosage: MD 4.0 ML, CR 4.5 ML/HOUR, CND 3.30 ML/HOUR, EXTRA DOSE 1.5 ML.
     Route: 050
  4. DUODOPA [Suspect]
     Active Substance: CARBIDOPA\LEVODOPA
     Dosage: MD 4.0ML, CD 4.5ML/HOUR, ED 1.0ML NCD 3.0ML/HOUR
     Route: 050
  5. DUODOPA [Suspect]
     Active Substance: CARBIDOPA\LEVODOPA
     Dosage: CURRENT MORNING 1.5 ML, CONTINUOUS RATE 3.4 ML/HOUR, NIGHT 2.1 ML, ED 1.5 ML
     Route: 050
  6. DUODOPA [Suspect]
     Active Substance: CARBIDOPA\LEVODOPA
     Dosage: M 5.0 ML, CRD DAY 4.0 ML/HOUR, EDD 2.0 ML, CRN 3.0 ML/HOUR, EDN 0.8 ML
     Route: 050
  7. DUODOPA [Suspect]
     Active Substance: CARBIDOPA\LEVODOPA
     Dosage: MD- 1.5 ML, CR- 4.2 ML/ HOUR, CRD- 2.5 ML?CED- 0.8 ML
     Route: 050
  8. DUODOPA [Suspect]
     Active Substance: CARBIDOPA\LEVODOPA
     Indication: PARKINSON^S DISEASE
     Dosage: CURRENT MD: 3.0 ML, CR: 4.2 ML/ HOUR, CND: 2.5 ML, CED 1.0 ML
     Route: 050
     Dates: start: 20170228
  9. AMANTADINE. [Suspect]
     Active Substance: AMANTADINE HYDROCHLORIDE
     Dosage: DOSE DECREASED
     Route: 065

REACTIONS (10)
  - Nocturnal dyspnoea [Unknown]
  - Food intolerance [Recovering/Resolving]
  - Mastication disorder [Unknown]
  - General physical health deterioration [Unknown]
  - Dyspnoea [Recovered/Resolved]
  - Tooth disorder [Unknown]
  - Weight decreased [Unknown]
  - On and off phenomenon [Unknown]
  - Balance disorder [Unknown]
  - Dysphagia [Unknown]

NARRATIVE: CASE EVENT DATE: 2019
